FAERS Safety Report 4342416-8 (Version None)
Quarter: 2004Q2

REPORT INFORMATION
  Report Type: 
  Country: None (occurrence: None)
  Receive Date: 20040420
  Receipt Date: 20040420
  Transmission Date: 20050107
  Serious: Yes (Life-Threatening, Hospitalization)
  Sender: FDA-Public Use
  Company Number: None

PATIENT
  Age: 65 Year
  Sex: Male
  Weight: 77 kg

DRUGS (9)
  1. PLAVIX [Suspect]
     Indication: PERIPHERAL VASCULAR DISORDER
     Dosage: 75 MG ORALLY
     Route: 048
  2. LIPITOR [Concomitant]
     Indication: HYPERLIPIDAEMIA
     Dosage: 10 MG ORALLY
     Route: 048
  3. PRILOSEC [Concomitant]
  4. VIOXX [Concomitant]
  5. LISINOPRIL [Concomitant]
  6. TOPROL-XL [Concomitant]
  7. CLONIDINE [Concomitant]
  8. DOXAZOSIN MESYLATE [Concomitant]
  9. LIPITOR [Concomitant]

REACTIONS (6)
  - ACIDOSIS [None]
  - BLOOD CREATINE INCREASED [None]
  - BLOOD UREA INCREASED [None]
  - DEHYDRATION [None]
  - HAEMOLYTIC ANAEMIA [None]
  - THROMBOTIC THROMBOCYTOPENIC PURPURA [None]
